FAERS Safety Report 21275365 (Version 1)
Quarter: 2022Q3

REPORT INFORMATION
  Report Type: Spontaneous
  Country: US (occurrence: None)
  Receive Date: 20220831
  Receipt Date: 20220831
  Transmission Date: 20221026
  Serious: Yes (Disabling)
  Sender: FDA-Public Use
  Company Number: None

PATIENT
  Age: 61 Year
  Sex: Female

DRUGS (2)
  1. LETROZOLE [Suspect]
     Active Substance: LETROZOLE
     Indication: Breast dysplasia
     Dosage: FREQUENCY : DAILY;?
     Route: 048
  2. PROLIA [Concomitant]
     Active Substance: DENOSUMAB
     Dates: start: 20220718

REACTIONS (4)
  - Fall [None]
  - Joint dislocation [None]
  - Musculoskeletal discomfort [None]
  - Muscular weakness [None]

NARRATIVE: CASE EVENT DATE: 20220803
